FAERS Safety Report 9016014 (Version 1)
Quarter: 2013Q1

REPORT INFORMATION
  Report Type: Spontaneous
  Country: PK (occurrence: PK)
  Receive Date: 20130116
  Receipt Date: 20130116
  Transmission Date: 20140127
  Serious: Yes (Hospitalization)
  Sender: FDA-Public Use
  Company Number: PHHY2013PK003654

PATIENT
  Age: 69 Year
  Sex: Female

DRUGS (2)
  1. ACLASTA [Suspect]
     Indication: OSTEOPOROSIS
     Dosage: ONCE YEARLY
     Route: 042
     Dates: start: 20120122
  2. CALCIUM [Concomitant]
     Indication: OSTEOPOROSIS
     Dosage: ONCE DAILY
     Route: 048
     Dates: start: 201201

REACTIONS (3)
  - Blood calcium increased [Recovered/Resolved]
  - Abnormal behaviour [Recovered/Resolved]
  - Altered state of consciousness [Recovered/Resolved]
